FAERS Safety Report 9431569 (Version 3)
Quarter: 2013Q3

REPORT INFORMATION
  Report Type: Report from Study
  Country: CA (occurrence: CA)
  Receive Date: 20130731
  Receipt Date: 20130807
  Transmission Date: 20140515
  Serious: Yes (Other)
  Sender: FDA-Public Use
  Company Number: CA-ROCHE-1210765

PATIENT
  Age: 58 Year
  Sex: Female
  Weight: 95 kg

DRUGS (11)
  1. RITUXAN [Suspect]
     Indication: RHEUMATOID ARTHRITIS
     Dosage: MOST RECENT DOSE: 30/APR/2013
     Route: 042
     Dates: start: 20110225
  2. DIPHENHYDRAMINE HCL [Concomitant]
     Indication: PREMEDICATION
     Route: 048
     Dates: start: 20110225
  3. ACETAMINOPHEN [Concomitant]
     Indication: PREMEDICATION
     Route: 048
     Dates: start: 20110225
  4. METHYLPREDNISOLONE [Concomitant]
     Indication: PREMEDICATION
     Route: 042
     Dates: start: 20110225
  5. SYNTHROID [Concomitant]
     Dosage: DOSE DECREASED
     Route: 065
  6. LORAZEPAM [Concomitant]
  7. QUETIAPINE [Concomitant]
  8. METHOTREXATE [Concomitant]
  9. PARIET [Concomitant]
  10. FOLIC ACID [Concomitant]
  11. CIPRALEX [Concomitant]
     Route: 048

REACTIONS (5)
  - Hypertension [Unknown]
  - Blood thyroid stimulating hormone decreased [Unknown]
  - Eye infection [Recovered/Resolved]
  - Sinus congestion [Not Recovered/Not Resolved]
  - Fatigue [Unknown]
